FAERS Safety Report 14816507 (Version 1)
Quarter: 2018Q2

REPORT INFORMATION
  Report Type: Spontaneous
  Country: CO (occurrence: CO)
  Receive Date: 20180426
  Receipt Date: 20180426
  Transmission Date: 20180711
  Serious: Yes (Hospitalization)
  Sender: FDA-Public Use
  Company Number: PHHY2018CO068159

PATIENT
  Age: 3 Year
  Sex: Male

DRUGS (1)
  1. AMOXICILLIN. [Suspect]
     Active Substance: AMOXICILLIN
     Indication: TONSILLITIS BACTERIAL
     Route: 065

REACTIONS (6)
  - Pyrexia [Unknown]
  - Pyelonephritis [Unknown]
  - Abdominal pain [Unknown]
  - Urinary tract infection [Unknown]
  - Tachycardia [Unknown]
  - Therapy non-responder [Unknown]
